FAERS Safety Report 10919947 (Version 1)
Quarter: 2015Q1

REPORT INFORMATION
  Report Type: Spontaneous
  Country: GB (occurrence: GB)
  Receive Date: 20150317
  Receipt Date: 20150317
  Transmission Date: 20150721
  Serious: Yes (Other)
  Sender: FDA-Public Use
  Company Number: GB-AMGEN-GBRSP2015022739

PATIENT
  Age: 64 Year
  Sex: Male
  Weight: 72 kg

DRUGS (8)
  1. ASPIRIN                            /00002701/ [Concomitant]
     Active Substance: ASPIRIN
  2. PROLIA [Suspect]
     Active Substance: DENOSUMAB
     Indication: OSTEOPOROSIS
     Dosage: 60 MG, UNK
     Route: 051
     Dates: start: 20150119
  3. MAXOLON [Concomitant]
     Active Substance: METOCLOPRAMIDE HYDROCHLORIDE
  4. ESTRADERM [Concomitant]
     Active Substance: ESTRADIOL
  5. PARIET [Concomitant]
     Active Substance: RABEPRAZOLE SODIUM
  6. SPIRONOLACTONE. [Concomitant]
     Active Substance: SPIRONOLACTONE
  7. CALCICHEW [Concomitant]
     Active Substance: CALCIUM CARBONATE
  8. COVERSYL                           /00790702/ [Concomitant]
     Active Substance: PERINDOPRIL

REACTIONS (4)
  - Laryngospasm [Not Recovered/Not Resolved]
  - Myalgia [Recovering/Resolving]
  - Hypocalcaemia [Not Recovered/Not Resolved]
  - Gastrooesophageal reflux disease [Not Recovered/Not Resolved]

NARRATIVE: CASE EVENT DATE: 20150120
